FAERS Safety Report 9639897 (Version 2)
Quarter: 2013Q4

REPORT INFORMATION
  Report Type: Report from Study
  Country: CA (occurrence: CA)
  Receive Date: 20131023
  Receipt Date: 20131023
  Transmission Date: 20140711
  Serious: Yes (Other)
  Sender: FDA-Public Use
  Company Number: CA-UCBSA-095723

PATIENT
  Age: 51 Year
  Sex: Female
  Weight: 61.2 kg

DRUGS (5)
  1. CIMZIA [Suspect]
     Indication: RHEUMATOID ARTHRITIS
     Dosage: WOULD START 200 MG ONCE EVERY 2 WEEKS FROM 11-SEP-2013
     Route: 058
     Dates: start: 20130731, end: 20130828
  2. CIMZIA [Suspect]
     Indication: RHEUMATOID ARTHRITIS
     Dates: start: 20130911
  3. TRAMADOL [Concomitant]
     Indication: RHEUMATOID ARTHRITIS
     Dosage: PRN
     Route: 048
  4. PANTALOC [Concomitant]
     Indication: GASTROINTESTINAL DISORDER
     Route: 048
  5. TORADOL [Concomitant]
     Indication: HEADACHE
     Dosage: TID/ AS NEEDED
     Route: 048
     Dates: start: 201307

REACTIONS (10)
  - Thyroid cyst [Not Recovered/Not Resolved]
  - Fungal infection [Not Recovered/Not Resolved]
  - Cystitis [Not Recovered/Not Resolved]
  - Injection site discolouration [Not Recovered/Not Resolved]
  - Oropharyngeal pain [Not Recovered/Not Resolved]
  - Lymphadenopathy [Not Recovered/Not Resolved]
  - Headache [Not Recovered/Not Resolved]
  - Ear pain [Not Recovered/Not Resolved]
  - Oral herpes [Not Recovered/Not Resolved]
  - Urinary tract infection [Not Recovered/Not Resolved]
